FAERS Safety Report 16420689 (Version 1)
Quarter: 2019Q3

REPORT INFORMATION
  Report Type: Spontaneous
  Country: US (occurrence: US)
  Receive Date: 20190611
  Receipt Date: 20190611
  Transmission Date: 20191004
  Serious: Yes (Other)
  Sender: FDA-Public Use
  Company Number: None

PATIENT
  Age: 76 Year
  Sex: Female
  Weight: 71.1 kg

DRUGS (6)
  1. THYROXIN [Concomitant]
     Active Substance: LEVOTHYROXINE
  2. ONE A DAY VITAMINS [Concomitant]
     Active Substance: VITAMINS
  3. DORZOLOMIDE HCL OPTHALMIC SOLUTION [Suspect]
     Active Substance: DORZOLAMIDE HYDROCHLORIDE
     Indication: GLAUCOMA
     Dosage: ?          QUANTITY:1 DROP(S);?
     Route: 047
     Dates: start: 20190425, end: 20190510
  4. PROBIOTICS [Concomitant]
     Active Substance: PROBIOTICS NOS
  5. RHOPRESSA [Concomitant]
     Active Substance: NETARSUDIL MESYLATE
  6. VITAMIN D3 [Concomitant]
     Active Substance: CHOLECALCIFEROL

REACTIONS (5)
  - Erythema [None]
  - Eye pain [None]
  - Vision blurred [None]
  - Visual impairment [None]
  - Intraocular pressure increased [None]

NARRATIVE: CASE EVENT DATE: 20190424
